FAERS Safety Report 23884709 (Version 1)
Quarter: 2024Q2

REPORT INFORMATION
  Report Type: Spontaneous
  Country: FI (occurrence: FI)
  Receive Date: 20240522
  Receipt Date: 20240522
  Transmission Date: 20240716
  Serious: Yes (Hospitalization)
  Sender: FDA-Public Use
  Company Number: None

PATIENT
  Age: 40 Year
  Sex: Female

DRUGS (5)
  1. SULFASALAZINE [Suspect]
     Active Substance: SULFASALAZINE
     Indication: Arthritis
     Dosage: 1 DF, DAILY (1ST WEEK 1 TABLET IN THE EVENING)
     Route: 048
     Dates: start: 20240215, end: 20240221
  2. SULFASALAZINE [Suspect]
     Active Substance: SULFASALAZINE
     Dosage: 1 DF, 2X/DAY (2ND WEEK 1 TABLET IN THE EVENING AND 1 IN THE MORNING)
     Route: 048
     Dates: start: 20240222, end: 20240228
  3. SULFASALAZINE [Suspect]
     Active Substance: SULFASALAZINE
     Dosage: 3 DF, DAILY (3RD WEEK 2 TABLETS IN THE EVENING AND 1 IN THE MORNING)
     Route: 048
     Dates: start: 20240229, end: 20240306
  4. SULFASALAZINE [Suspect]
     Active Substance: SULFASALAZINE
     Dosage: 2 DF, 2X/DAY (4TH WEEK AND FROM THERE, 2 TABLETS IN THE EVENING AND 2 IN THE MORNING)
     Route: 048
     Dates: start: 20240307, end: 20240315
  5. PREDNISOLONE [Concomitant]
     Active Substance: PREDNISOLONE
     Indication: Arthritis
     Dosage: 15-5MG
     Route: 048
     Dates: start: 202312

REACTIONS (6)
  - Rash [Recovering/Resolving]
  - Myalgia [Recovering/Resolving]
  - Pyrexia [Recovering/Resolving]
  - Pruritus [Recovering/Resolving]
  - Skin burning sensation [Recovering/Resolving]
  - Drug hypersensitivity [Recovering/Resolving]

NARRATIVE: CASE EVENT DATE: 20240101
